FAERS Safety Report 25691740 (Version 4)
Quarter: 2025Q3

REPORT INFORMATION
  Report Type: Spontaneous
  Country: EU (occurrence: EU)
  Receive Date: 20250818
  Receipt Date: 20250903
  Transmission Date: 20251020
  Serious: Yes (Death, Hospitalization, Other)
  Sender: MYLAN
  Company Number: EU-SANDOZ-SDZ2025RO054693

PATIENT
  Age: 79 Year
  Sex: Female

DRUGS (16)
  1. SUNITINIB [Suspect]
     Active Substance: SUNITINIB
     Indication: Gastrointestinal stromal tumour
  2. SUNITINIB [Suspect]
     Active Substance: SUNITINIB
     Route: 065
  3. SUNITINIB [Suspect]
     Active Substance: SUNITINIB
     Route: 065
  4. SUNITINIB [Suspect]
     Active Substance: SUNITINIB
  5. ESOMEPRAZOLE [Concomitant]
     Active Substance: ESOMEPRAZOLE
     Dosage: 20 MILLIGRAM, QD
  6. ESOMEPRAZOLE [Concomitant]
     Active Substance: ESOMEPRAZOLE
     Dosage: 20 MILLIGRAM, QD
     Route: 065
  7. ESOMEPRAZOLE [Concomitant]
     Active Substance: ESOMEPRAZOLE
     Dosage: 20 MILLIGRAM, QD
     Route: 065
  8. ESOMEPRAZOLE [Concomitant]
     Active Substance: ESOMEPRAZOLE
     Dosage: 20 MILLIGRAM, QD
  9. FERROUS SULFATE [Concomitant]
     Active Substance: FERROUS SULFATE
     Dosage: 80 MILLIGRAM, QD
  10. FERROUS SULFATE [Concomitant]
     Active Substance: FERROUS SULFATE
     Dosage: 80 MILLIGRAM, QD
     Route: 065
  11. FERROUS SULFATE [Concomitant]
     Active Substance: FERROUS SULFATE
     Dosage: 80 MILLIGRAM, QD
     Route: 065
  12. FERROUS SULFATE [Concomitant]
     Active Substance: FERROUS SULFATE
     Dosage: 80 MILLIGRAM, QD
  13. Liv 52 [Concomitant]
     Dosage: UNK, QID (4 TIMES/DAY)
  14. Liv 52 [Concomitant]
     Dosage: UNK, QID (4 TIMES/DAY)
     Route: 065
  15. Liv 52 [Concomitant]
     Dosage: UNK, QID (4 TIMES/DAY)
     Route: 065
  16. Liv 52 [Concomitant]
     Dosage: UNK, QID (4 TIMES/DAY)

REACTIONS (12)
  - Gastrointestinal stromal tumour [Fatal]
  - Disease progression [Fatal]
  - Arterial stenosis [Unknown]
  - Cataract [Unknown]
  - Onycholysis [Unknown]
  - Drug resistance [Unknown]
  - Leukopenia [Unknown]
  - Neutropenia [Recovered/Resolved]
  - Anaemia [Unknown]
  - Nail bed disorder [Unknown]
  - Alopecia [Unknown]
  - Hypertension [Unknown]
